FAERS Safety Report 24172255 (Version 2)
Quarter: 2024Q3

REPORT INFORMATION
  Report Type: Spontaneous
  Country: GB (occurrence: GB)
  Receive Date: 20240805
  Receipt Date: 20240920
  Transmission Date: 20241016
  Serious: Yes (Other)
  Sender: NOVO NORDISK
  Company Number: GB-NOVOPROD-1262250

PATIENT

DRUGS (4)
  1. VICTOZA [Suspect]
     Active Substance: LIRAGLUTIDE
     Indication: Hypopituitarism
     Dosage: 1.8 MG
  2. SAXENDA [Suspect]
     Active Substance: LIRAGLUTIDE
     Indication: Hypopituitarism
     Dosage: 1.8 MG
  3. HYDROCORTISONE [Concomitant]
     Active Substance: HYDROCORTISONE\HYDROCORTISONE ACETATE
     Indication: Addison^s disease
     Dosage: UNK
  4. NORDITROPIN [Concomitant]
     Active Substance: SOMATROPIN
     Indication: Product used for unknown indication
     Dosage: UNK

REACTIONS (3)
  - Benign neoplasm of thyroid gland [Unknown]
  - Weight increased [Unknown]
  - Product use in unapproved indication [Unknown]
